FAERS Safety Report 8246235-1 (Version None)
Quarter: 2012Q1

REPORT INFORMATION
  Report Type: 
  Country: None (occurrence: None)
  Receive Date: 20120330
  Receipt Date: 20110106
  Transmission Date: 20120608
  Serious: No
  Sender: FDA-Public Use
  Company Number: -MYLANLABS-2011S1000618

PATIENT
  Age: 7 Year
  Sex: Male
  Weight: 28.58 kg

DRUGS (1)
  1. ALBUTEROL SULATE [Suspect]
     Indication: COUGH
     Route: 055

REACTIONS (3)
  - ASTHENIA [None]
  - PYREXIA [None]
  - PALLOR [None]
